FAERS Safety Report 16705373 (Version 3)
Quarter: 2025Q2

REPORT INFORMATION
  Report Type: Spontaneous
  Country: US (occurrence: US)
  Receive Date: 20190815
  Receipt Date: 20250516
  Transmission Date: 20250717
  Serious: No
  Sender: COHERUS
  Company Number: US-COHERUS BIOSCIENCES, INC-2019US004973

PATIENT

DRUGS (2)
  1. UDENYCA [Suspect]
     Active Substance: PEGFILGRASTIM-CBQV
     Indication: Infection prophylaxis
     Route: 058
     Dates: start: 2019
  2. CARBOPLATIN;DOCETAXEL [Concomitant]

REACTIONS (2)
  - Rash [Recovered/Resolved]
  - Pruritus [Unknown]
